FAERS Safety Report 11393961 (Version 5)
Quarter: 2015Q3

REPORT INFORMATION
  Report Type: Spontaneous
  Country: NL (occurrence: NL)
  Receive Date: 20150819
  Receipt Date: 20150916
  Transmission Date: 20151125
  Serious: Yes (Death, Hospitalization, Disabling, Other)
  Sender: FDA-Public Use
  Company Number: NL-ROCHE-1621796

PATIENT
  Age: 60 Year
  Sex: Male

DRUGS (8)
  1. PARACETAMOL [Concomitant]
     Active Substance: ACETAMINOPHEN
  2. SALICYLAZOSULFAPYRIDINE [Concomitant]
     Active Substance: SULFASALAZINE
  3. ROACTEMRA [Suspect]
     Active Substance: TOCILIZUMAB
     Indication: RHEUMATOID ARTHRITIS
     Route: 042
     Dates: start: 20140902
  4. PANTOPRAZOLE [Concomitant]
     Active Substance: PANTOPRAZOLE SODIUM
  5. REMICADE [Concomitant]
     Active Substance: INFLIXIMAB
  6. HUMIRA [Concomitant]
     Active Substance: ADALIMUMAB
     Route: 058
  7. CYMBALTA [Concomitant]
     Active Substance: DULOXETINE HYDROCHLORIDE
  8. METHOTREXATE [Concomitant]
     Active Substance: METHOTREXATE
     Route: 058

REACTIONS (6)
  - Lung consolidation [Not Recovered/Not Resolved]
  - Systemic lupus erythematosus [Unknown]
  - Malaise [Unknown]
  - Lung disorder [Fatal]
  - Weight decreased [Unknown]
  - Cerebrovascular accident [Not Recovered/Not Resolved]

NARRATIVE: CASE EVENT DATE: 20150225
